FAERS Safety Report 12747066 (Version 2)
Quarter: 2016Q3

REPORT INFORMATION
  Report Type: Report from Study
  Country: AU (occurrence: AU)
  Receive Date: 20160915
  Receipt Date: 20160922
  Transmission Date: 20161109
  Serious: Yes (Hospitalization)
  Sender: FDA-Public Use
  Company Number: AU-ABBVIE-16K-008-1725027-00

PATIENT
  Sex: Male

DRUGS (1)
  1. DUODOPA [Suspect]
     Active Substance: CARBIDOPA\LEVODOPA
     Indication: PARKINSON^S DISEASE
     Dosage: 16 HOUR INFUSION
     Route: 050
     Dates: start: 20150629

REACTIONS (6)
  - Weight decreased [Unknown]
  - Dysphagia [Unknown]
  - Incorrect route of drug administration [Not Recovered/Not Resolved]
  - Device difficult to use [Unknown]
  - Stoma site discharge [Unknown]
  - Device damage [Unknown]
